FAERS Safety Report 9434358 (Version 1)
Quarter: 2013Q3

REPORT INFORMATION
  Report Type: Spontaneous
  Country: US (occurrence: None)
  Receive Date: 20130731
  Receipt Date: 20130731
  Transmission Date: 20140515
  Serious: Yes (Hospitalization)
  Sender: FDA-Public Use
  Company Number: None

PATIENT
  Age: 62 Year
  Sex: Female

DRUGS (4)
  1. LETAIRIS [Suspect]
     Indication: PULMONARY HYPERTENSION
     Dosage: 5MG QD ORALLY
     Route: 048
     Dates: start: 20130614, end: 20130624
  2. WARFARIN [Concomitant]
  3. OMEPRAZOLE [Concomitant]
  4. PROAIR HFA [Concomitant]

REACTIONS (1)
  - Right ventricular failure [None]
